FAERS Safety Report 6078551-6 (Version None)
Quarter: 2009Q1

REPORT INFORMATION
  Report Type: 
  Country: None (occurrence: None)
  Receive Date: 20090212
  Receipt Date: 20090212
  Transmission Date: 20090719
  Serious: No
  Sender: FDA-Public Use
  Company Number: None

PATIENT
  Sex: Female
  Weight: 89.77 kg

DRUGS (9)
  1. ISONIAZID [Suspect]
     Dosage: 300MG TABLET 300 MG QD ORAL
     Route: 048
     Dates: start: 20060809, end: 20090212
  2. ALBUTEROL [Concomitant]
  3. CALTRATE 600 + D (CALCIUM CARBONATE 1500 MG (600 MG ELEM CA)/ VIT D 20 [Concomitant]
  4. CLOBETASOL PROPIONATE 0.05% [Concomitant]
  5. FLUOXETINE HCL [Concomitant]
  6. FLUTICASONE PROPIONATE [Concomitant]
  7. GEODON [Concomitant]
  8. MOTRIN [Concomitant]
  9. PYRIDOXINE (PYRIDOXINE HCL) [Concomitant]

REACTIONS (2)
  - NAUSEA [None]
  - RASH [None]
